FAERS Safety Report 7476520-2 (Version None)
Quarter: 2011Q2

REPORT INFORMATION
  Report Type: 
  Country: None (occurrence: None)
  Receive Date: 20110512
  Receipt Date: 20110510
  Transmission Date: 20111010
  Serious: Yes (Life-Threatening, Hospitalization, Other)
  Sender: FDA-Public Use
  Company Number: PHHY2009TW61037

PATIENT
  Sex: Male

DRUGS (4)
  1. EXJADE [Suspect]
     Dosage: 1500 MG, DAILY
  2. EXJADE [Suspect]
     Dosage: 1250 MG, UNK
     Route: 048
  3. EXJADE [Suspect]
     Dosage: 750 MG, UNK
     Route: 048
     Dates: end: 20100810
  4. EXJADE [Suspect]
     Indication: MYELODYSPLASTIC SYNDROME
     Dosage: 1250 MG X 12 TABLETS
     Route: 048

REACTIONS (9)
  - FALL [None]
  - SYNCOPE [None]
  - SHOCK [None]
  - ORTHOSTATIC HYPOTENSION [None]
  - HAEMOGLOBIN DECREASED [None]
  - DIARRHOEA [None]
  - CAROTID ARTERY STENOSIS [None]
  - HAEMATEMESIS [None]
  - DIZZINESS [None]
